FAERS Safety Report 5053651-8 (Version None)
Quarter: 2006Q3

REPORT INFORMATION
  Report Type: 
  Country: None (occurrence: None)
  Receive Date: 20060712
  Receipt Date: 20060628
  Transmission Date: 20061208
  Serious: Yes (Life-Threatening)
  Sender: FDA-Public Use
  Company Number: 2006019056

PATIENT
  Age: 30 Year
  Sex: Female
  Weight: 44 kg

DRUGS (13)
  1. SUTENT [Suspect]
     Indication: GASTROINTESTINAL STROMAL TUMOUR
     Dosage: 50 MG (50 MG, 1 IN 1 D), ORAL
     Route: 048
     Dates: start: 20051104, end: 20060201
  2. FUROSEMIDE [Concomitant]
  3. CALCIUM POLYSTYRENE SULFONATE [Concomitant]
  4. MORPHINE SULFATE [Concomitant]
  5. LACTULOSE [Concomitant]
  6. MAGNESIUM OXIDE [Concomitant]
  7. PHENIRAMINE MALEATE [Concomitant]
  8. METOCLOPRAMIDE HYDROCHLORIDE [Concomitant]
  9. TRAMADOL HCL [Concomitant]
  10. ALBUMIN (HUMAN) [Concomitant]
  11. RABEPRAZOLE SODIUM [Concomitant]
  12. DOMPERIDONE [Concomitant]
  13. KETOPROFEN [Concomitant]

REACTIONS (5)
  - ASCITES [None]
  - ASTHENIA [None]
  - DIARRHOEA [None]
  - KETOACIDOSIS [None]
  - MENTAL STATUS CHANGES [None]
